FAERS Safety Report 7881422-3 (Version None)
Quarter: 2011Q4

REPORT INFORMATION
  Report Type: 
  Country: None (occurrence: None)
  Receive Date: 20111101
  Receipt Date: 20110523
  Transmission Date: 20120403
  Serious: No
  Sender: FDA-Public Use
  Company Number: US-AMGEN-USASP2011026692

PATIENT
  Age: 50 Year
  Sex: Male
  Weight: 68.027 kg

DRUGS (6)
  1. PREDNISONE [Concomitant]
     Dosage: 1 MG, UNK
     Route: 048
  2. CALCIUM +D                         /00188401/ [Concomitant]
     Route: 048
  3. ENBREL [Suspect]
     Indication: PRODUCT USED FOR UNKNOWN INDICATION
     Dosage: 50 MG, QWK
     Route: 058
  4. AZULFIDINE [Concomitant]
     Dosage: 500 MG, UNK
     Route: 048
  5. PAXIL [Concomitant]
     Dosage: 10 MG, UNK
     Route: 048
  6. GINSENG                            /00480901/ [Concomitant]
     Dosage: 250 MG, UNK
     Route: 048

REACTIONS (1)
  - EAR INFECTION [None]
